FAERS Safety Report 9248478 (Version 7)
Quarter: 2013Q4

REPORT INFORMATION
  Report Type: Report from Study
  Country: CA (occurrence: CA)
  Receive Date: 20130423
  Receipt Date: 20131120
  Transmission Date: 20140711
  Serious: Yes (Other)
  Sender: FDA-Public Use
  Company Number: CA-ROCHE-1162246

PATIENT
  Age: 75 Year
  Sex: Male
  Weight: 90.7 kg

DRUGS (30)
  1. RITUXAN [Suspect]
     Indication: GRANULOMATOSIS WITH POLYANGIITIS
     Route: 042
     Dates: start: 20121126
  2. RITUXAN [Suspect]
     Route: 042
     Dates: start: 20121210
  3. TYLENOL [Concomitant]
     Indication: PREMEDICATION
     Route: 048
     Dates: start: 20121126
  4. BENADRYL (CANADA) [Concomitant]
     Indication: PREMEDICATION
     Route: 048
     Dates: start: 20121126
  5. SOLU-MEDROL [Concomitant]
     Indication: PREMEDICATION
     Route: 042
     Dates: start: 20121126
  6. HYDROMORPH CONTIN [Concomitant]
  7. HYDROMORPHONE [Concomitant]
  8. AMLODIPINE [Concomitant]
  9. PREDNISONE [Concomitant]
  10. TERAZOSIN [Concomitant]
  11. AVODART [Concomitant]
  12. ROSUVASTATIN [Concomitant]
  13. BETAHISTINE [Concomitant]
  14. DOCUSATE [Concomitant]
  15. METOCLOPRAMIDE [Concomitant]
  16. OMEPRAZOLE [Concomitant]
  17. SENOKOT [Concomitant]
  18. TAMSULOSIN [Concomitant]
  19. SYNTHROID [Concomitant]
  20. VENLAFAXINE [Concomitant]
  21. WARFARIN [Concomitant]
  22. IBUPROFEN FAST GEL [Concomitant]
  23. LAX-A-DAY [Concomitant]
  24. NOVOLIN GE [Concomitant]
  25. RISEDRONATE [Concomitant]
  26. ECTOSONE [Concomitant]
  27. VITAMIN B12 [Concomitant]
  28. DIPHENHYDRAMINE HCL [Concomitant]
     Indication: PREMEDICATION
     Route: 048
     Dates: start: 20121126
  29. ACETAMINOPHEN [Concomitant]
     Indication: PREMEDICATION
     Route: 048
     Dates: start: 20121126
  30. METHYLPREDNISOLONE [Concomitant]
     Indication: PREMEDICATION
     Route: 042
     Dates: start: 20121126

REACTIONS (10)
  - Post procedural haemorrhage [Unknown]
  - Pseudomonas test positive [Not Recovered/Not Resolved]
  - Urinary tract infection [Unknown]
  - Urine analysis abnormal [Unknown]
  - Bacterial test [Not Recovered/Not Resolved]
  - Pyrexia [Not Recovered/Not Resolved]
  - Asthenia [Recovering/Resolving]
  - Asthenia [Not Recovered/Not Resolved]
  - Influenza [Recovering/Resolving]
  - Abdominal pain lower [Not Recovered/Not Resolved]
